FAERS Safety Report 7795103-8 (Version None)
Quarter: 2011Q4

REPORT INFORMATION
  Report Type: 
  Country: None (occurrence: None)
  Receive Date: 20111004
  Receipt Date: 20110927
  Transmission Date: 20120403
  Serious: Yes (Death, Disabling, Other)
  Sender: FDA-Public Use
  Company Number: US-AMGEN-US313491

PATIENT
  Age: 57 Year
  Sex: Male
  Weight: 92.9 kg

DRUGS (19)
  1. TERIPARATIDE [Concomitant]
     Dosage: UNK UNK, QD
     Route: 058
  2. METOPROLOL TARTRATE [Concomitant]
     Dosage: 100 MG, QD
  3. LANSOPRAZOLE [Concomitant]
     Dosage: UNK UNK, BID
  4. FLUCONAZOLE [Concomitant]
     Dosage: 100 MG, QD
     Route: 048
  5. METHYLDOPA/HYDROCHLOROTHIAZIDE [Concomitant]
     Dosage: UNK UNK, Q6H
     Route: 048
  6. LOVAZA [Concomitant]
  7. FUROSEMIDE [Concomitant]
     Dosage: 20 MG, QD
  8. TRIMETHOPRIM + SULFAMETHOXAZOLE [Concomitant]
     Dosage: UNK UNK, 3 TIMES/WK
  9. BENZYLPENICILLOYL-POLYLYSINE [Concomitant]
     Dosage: 500 MG, Q8H
  10. NPLATE [Suspect]
     Indication: IDIOPATHIC THROMBOCYTOPENIC PURPURA
     Dosage: 7 MUG/KG, UNK
     Dates: end: 20081217
  11. NPLATE [Suspect]
  12. ALBUTEROL INHALER [Concomitant]
  13. CALCIUM CARBONATE [Concomitant]
  14. ERGOCALCIFEROL [Concomitant]
     Dosage: UNK UNK, QMO
  15. PREDNISONE [Concomitant]
     Dosage: UNK UNK, UNK
     Route: 048
     Dates: start: 19970101
  16. NPLATE [Suspect]
     Dosage: .19 MG, UNK
     Route: 058
     Dates: start: 20081007
  17. FOLIC ACID [Concomitant]
     Dosage: 1 MG, QD
     Route: 048
  18. MULTI-VITAMINS [Concomitant]
  19. OXYCODONE HCL [Concomitant]
     Dosage: 10 MG, PRN

REACTIONS (6)
  - ASTHENIA [None]
  - HEADACHE [None]
  - MYELITIS TRANSVERSE [None]
  - NAUSEA [None]
  - ARTHRALGIA [None]
  - SENSORY DISTURBANCE [None]
